FAERS Safety Report 18713922 (Version 10)
Quarter: 2023Q2

REPORT INFORMATION
  Report Type: Report from Study
  Country: US (occurrence: US)
  Receive Date: 20210107
  Receipt Date: 20230523
  Transmission Date: 20230722
  Serious: Yes (Other)
  Sender: FDA-Public Use
  Company Number: US-TAKEDA-2021TUS000929

PATIENT
  Age: 59 Year
  Sex: Female
  Weight: 79 kg

DRUGS (13)
  1. HUMAN IMMUNOGLOBULIN G [Suspect]
     Active Substance: HUMAN IMMUNOGLOBULIN G
     Indication: Immunodeficiency common variable
     Dosage: 4 GRAM, Q2WEEKS
     Route: 058
     Dates: start: 20201223
  2. HUMAN IMMUNOGLOBULIN G [Suspect]
     Active Substance: HUMAN IMMUNOGLOBULIN G
     Dosage: 10 GRAM, 1/WEEK
     Route: 058
     Dates: start: 20201223
  3. ACETAMINOPHEN [Concomitant]
     Active Substance: ACETAMINOPHEN
     Dosage: UNK
     Route: 065
  4. DIPHENHYDRAMINE [Concomitant]
     Active Substance: DIPHENHYDRAMINE
     Route: 065
  5. LIDOCAINE [Concomitant]
     Active Substance: LIDOCAINE
     Dosage: UNK
     Route: 065
  6. EPINEPHRINE [Concomitant]
     Active Substance: EPINEPHRINE
     Dosage: UNK
     Route: 065
  7. COENZYME Q10 [Concomitant]
     Active Substance: DIETARY SUPPLEMENT\UBIDECARENONE
     Dosage: UNK
     Route: 065
  8. B-COMPLEX 2000 [Concomitant]
     Dosage: UNK
     Route: 065
  9. DIGESTIVE ENZYMES V COMPLEX [Concomitant]
     Dosage: UNK
     Route: 065
  10. MAGNESIUM [Concomitant]
     Active Substance: MAGNESIUM
     Dosage: UNK
     Route: 065
  11. VITAMIN B COMPLEX [Concomitant]
     Active Substance: CYANOCOBALAMIN\DEXPANTHENOL\NIACINAMIDE\PYRIDOXINE HYDROCHLORIDE\RIBOFLAVIN 5^-PHOSPHATE SODIUM\THIA
     Dosage: UNK
     Route: 065
  12. UNSPECIFIED INGREDIENT [Concomitant]
     Active Substance: UNSPECIFIED INGREDIENT
     Dosage: UNK
     Route: 065
  13. COD LIVER OIL [Concomitant]
     Active Substance: COD LIVER OIL

REACTIONS (18)
  - Exophthalmos [Unknown]
  - Tinnitus [Unknown]
  - Sinus disorder [Unknown]
  - Tooth demineralisation [Unknown]
  - Dental caries [Unknown]
  - Drug hypersensitivity [Unknown]
  - COVID-19 [Unknown]
  - Multiple allergies [Unknown]
  - Osteoporosis [Unknown]
  - Seasonal allergy [Unknown]
  - Infusion site haemorrhage [Unknown]
  - Infusion site pain [Unknown]
  - Infusion site mass [Unknown]
  - Feeling abnormal [Unknown]
  - Arthralgia [Unknown]
  - Headache [Unknown]
  - Overdose [Unknown]
  - Inappropriate schedule of product administration [Unknown]

NARRATIVE: CASE EVENT DATE: 20220623
